FAERS Safety Report 18851023 (Version 3)
Quarter: 2021Q2

REPORT INFORMATION
  Report Type: Report from Study
  Country: EG (occurrence: EG)
  Receive Date: 20210204
  Receipt Date: 20210429
  Transmission Date: 20210717
  Serious: Yes (Other)
  Sender: FDA-Public Use
  Company Number: NVSC2021EG022764

PATIENT
  Age: 12 Year
  Sex: Female
  Weight: 34 kg

DRUGS (3)
  1. OMNITROPE [Suspect]
     Active Substance: SOMATROPIN
     Indication: GROWTH HORMONE DEFICIENCY
     Dosage: 2 MG, QD (IT WILL BE INCREASED DUE TO NORMAL GROWTH)
     Route: 058
     Dates: start: 20200627
  2. PEDIASURE [Concomitant]
     Active Substance: VITAMINS
     Indication: PRODUCT USED FOR UNKNOWN INDICATION
     Dosage: (A DOSE OF ONE SPOONFUL OF PEDIASURE ON A CUP OF MILK, DAILY)
     Route: 065
     Dates: start: 202003
  3. OMNITROPE [Suspect]
     Active Substance: SOMATROPIN
     Indication: SHORT STATURE

REACTIONS (6)
  - Device malfunction [Not Recovered/Not Resolved]
  - Device leakage [Not Recovered/Not Resolved]
  - Injection site extravasation [Not Recovered/Not Resolved]
  - Anaemia [Unknown]
  - Overdose [Not Recovered/Not Resolved]
  - Injection site bruising [Not Recovered/Not Resolved]

NARRATIVE: CASE EVENT DATE: 202011
